FAERS Safety Report 11989908 (Version 3)
Quarter: 2016Q4

REPORT INFORMATION
  Report Type: Spontaneous
  Country: US (occurrence: US)
  Receive Date: 20160202
  Receipt Date: 20161103
  Transmission Date: 20170206
  Serious: No
  Sender: FDA-Public Use
  Company Number: US-IMPAX LABORATORIES, INC-2015-IPXL-01275

PATIENT
  Sex: Male
  Weight: 73 kg

DRUGS (5)
  1. ESCITALOPRAM [Concomitant]
     Active Substance: ESCITALOPRAM OXALATE
     Indication: PARKINSON^S DISEASE
     Dosage: 20 MG AND 10 MG UNK
     Route: 065
     Dates: start: 2011
  2. AZILECT [Concomitant]
     Active Substance: RASAGILINE MESYLATE
     Indication: PARKINSON^S DISEASE
     Dosage: 1 MG, UNK
     Route: 065
     Dates: start: 2011
  3. RYTARY [Suspect]
     Active Substance: CARBIDOPA\LEVODOPA
     Dosage: (48.75/ 195 MG) TWO CAPSULES FOUR TIMES DAILY
     Route: 048
     Dates: start: 20150916
  4. RYTARY [Suspect]
     Active Substance: CARBIDOPA\LEVODOPA
     Indication: PARKINSON^S DISEASE
     Dosage: (23.75/ 95MG) THREE CAPSULES THREE TIMES DAILY
     Route: 048
     Dates: start: 201507
  5. NEUPRO [Concomitant]
     Active Substance: ROTIGOTINE
     Indication: PARKINSON^S DISEASE
     Dosage: 4 MG, DAILY
     Route: 065
     Dates: start: 201511

REACTIONS (3)
  - Drug ineffective [Unknown]
  - Rash [Unknown]
  - Drug effect variable [Not Recovered/Not Resolved]

NARRATIVE: CASE EVENT DATE: 2015
